FAERS Safety Report 4850722-3 (Version None)
Quarter: 2005Q4

REPORT INFORMATION
  Report Type: 
  Country: None (occurrence: None)
  Receive Date: 20051208
  Receipt Date: 20051123
  Transmission Date: 20060501
  Serious: Yes (Life-Threatening, Disabling)
  Sender: FDA-Public Use
  Company Number: 219882

PATIENT
  Age: 48 Year
  Sex: Female
  Weight: 60 kg

DRUGS (7)
  1. XOLAIR [Suspect]
     Indication: ASTHMA
     Dosage: 150 MG, 1/MONTH, SUBCUTANEOUS
     Route: 058
  2. THEOPHYLLINE [Concomitant]
  3. MONTELUKAST (MONTELUKAST SODIUM) [Concomitant]
  4. NASONEX [Concomitant]
  5. AERIUS (DESLORATADINE) [Concomitant]
  6. BRICANYL [Concomitant]
  7. SYMBICORT (FORMOTEROL FUMARATE, BUDESONIDE) [Concomitant]

REACTIONS (2)
  - ARTERIAL THROMBOSIS LIMB [None]
  - MYOCARDIAL ISCHAEMIA [None]
